FAERS Safety Report 18229122 (Version 2)
Quarter: 2020Q3

REPORT INFORMATION
  Report Type: Other
  Country: CN (occurrence: CN)
  Receive Date: 20200903
  Receipt Date: 20200908
  Transmission Date: 20201103
  Serious: Yes (Other)
  Sender: FDA-Public Use
  Company Number: CN-ABBVIE-20K-035-3552540-00

PATIENT
  Age: 32 Year
  Sex: Female

DRUGS (7)
  1. DEXAMETHASONE. [Suspect]
     Active Substance: DEXAMETHASONE
     Indication: PRIMARY MEDIASTINAL LARGE B-CELL LYMPHOMA
     Dosage: CYCLICAL
     Route: 065
     Dates: start: 201704, end: 201704
  2. IFOSFAMIDE. [Suspect]
     Active Substance: IFOSFAMIDE
     Indication: PRIMARY MEDIASTINAL LARGE B-CELL LYMPHOMA
     Dosage: CYCLICAL
     Route: 065
     Dates: start: 201704, end: 201704
  3. IBRUTINIB [Suspect]
     Active Substance: IBRUTINIB
     Indication: PRIMARY MEDIASTINAL LARGE B-CELL LYMPHOMA
     Dosage: CYCLICAL
     Route: 048
     Dates: start: 201705, end: 201705
  4. CYTARABINE. [Suspect]
     Active Substance: CYTARABINE
     Indication: PRIMARY MEDIASTINAL LARGE B-CELL LYMPHOMA
     Dosage: CYCLICAL
     Route: 065
     Dates: start: 201705, end: 201705
  5. ETOPOSIDE. [Suspect]
     Active Substance: ETOPOSIDE
     Indication: PRIMARY MEDIASTINAL LARGE B-CELL LYMPHOMA
     Dosage: CYCLICAL
     Route: 065
     Dates: start: 201704, end: 201704
  6. BENDAMUSTINE [Suspect]
     Active Substance: BENDAMUSTINE
     Indication: PRIMARY MEDIASTINAL LARGE B-CELL LYMPHOMA
     Dosage: CYCLICAL
     Route: 065
     Dates: start: 201705, end: 201705
  7. CISPLATIN. [Suspect]
     Active Substance: CISPLATIN
     Indication: PRIMARY MEDIASTINAL LARGE B-CELL LYMPHOMA
     Dosage: CYCLICAL
     Route: 065
     Dates: start: 201704, end: 201704

REACTIONS (2)
  - Off label use [Unknown]
  - Myelosuppression [Unknown]

NARRATIVE: CASE EVENT DATE: 201705
